FAERS Safety Report 9652486 (Version 5)
Quarter: 2013Q4

REPORT INFORMATION
  Report Type: Spontaneous
  Country: US (occurrence: US)
  Receive Date: 20131029
  Receipt Date: 20131118
  Transmission Date: 20140711
  Serious: Yes (Hospitalization, Other)
  Sender: FDA-Public Use
  Company Number: US-GILEAD-2013-0086276

PATIENT
  Sex: Female

DRUGS (2)
  1. LETAIRIS [Suspect]
     Indication: PULMONARY ARTERIAL HYPERTENSION
     Dosage: 5 MG, QD
     Dates: start: 20110826
  2. LETAIRIS [Suspect]
     Indication: RHEUMATOID ARTHRITIS
     Dates: start: 20110825

REACTIONS (4)
  - Intestinal obstruction [Unknown]
  - Cellulitis [Unknown]
  - Stoma site pain [Unknown]
  - Small intestinal obstruction [Unknown]
